FAERS Safety Report 17876588 (Version 2)
Quarter: 2020Q3

REPORT INFORMATION
  Report Type: Spontaneous
  Country: HR (occurrence: HR)
  Receive Date: 20200609
  Receipt Date: 20200817
  Transmission Date: 20201103
  Serious: Yes (Other)
  Sender: FDA-Public Use
  Company Number: NVSC2020HR158679

PATIENT
  Age: 58 Year
  Sex: Female

DRUGS (4)
  1. EBETREXATE [Suspect]
     Active Substance: METHOTREXATE SODIUM
     Indication: PRODUCT USED FOR UNKNOWN INDICATION
     Dosage: 15 MG
     Route: 058
     Dates: start: 201601
  2. ARAVA [Suspect]
     Active Substance: LEFLUNOMIDE
     Indication: RHEUMATOID ARTHRITIS
     Dosage: 1 DF, QD
     Route: 065
  3. METHOTREXATE. [Suspect]
     Active Substance: METHOTREXATE
     Indication: RHEUMATOID ARTHRITIS
     Dosage: 15 MG, QW
     Route: 065
  4. METHOTREXATE. [Suspect]
     Active Substance: METHOTREXATE
     Dosage: 12.5 MG, QW
     Route: 065

REACTIONS (19)
  - Nausea [Unknown]
  - Epstein-Barr virus infection [Unknown]
  - Rheumatoid arthritis [Unknown]
  - Swelling [Unknown]
  - Total lung capacity abnormal [Unknown]
  - Nasopharyngitis [Unknown]
  - Interstitial lung disease [Unknown]
  - Aspartate aminotransferase increased [Unknown]
  - Alopecia [Unknown]
  - Nodule [Unknown]
  - Aspartate aminotransferase decreased [Unknown]
  - Pyrexia [Not Recovered/Not Resolved]
  - Arthralgia [Recovering/Resolving]
  - Alanine aminotransferase decreased [Unknown]
  - Red blood cell sedimentation rate increased [Unknown]
  - Abdominal discomfort [Unknown]
  - Gastric disorder [Unknown]
  - Joint swelling [Recovering/Resolving]
  - Fatigue [Unknown]

NARRATIVE: CASE EVENT DATE: 201601
